FAERS Safety Report 10120593 (Version 2)
Quarter: 2014Q2

REPORT INFORMATION
  Report Type: Spontaneous
  Country: US (occurrence: US)
  Receive Date: 20140425
  Receipt Date: 20140505
  Transmission Date: 20141212
  Serious: Yes (Hospitalization)
  Sender: FDA-Public Use
  Company Number: US-GILEAD-2014-0100508

PATIENT
  Sex: Female

DRUGS (2)
  1. LETAIRIS [Suspect]
     Indication: PRODUCT USED FOR UNKNOWN INDICATION
     Dosage: 5 MG, QD
     Route: 065
     Dates: start: 20140311
  2. ADCIRCA [Concomitant]

REACTIONS (6)
  - Rectal prolapse [Unknown]
  - Heart rate abnormal [Unknown]
  - Surgery [Unknown]
  - Cardiac flutter [Unknown]
  - Diplopia [Unknown]
  - Surgery [Unknown]
